FAERS Safety Report 19854423 (Version 1)
Quarter: 2021Q3

REPORT INFORMATION
  Report Type: Spontaneous
  Country: JP (occurrence: JP)
  Receive Date: 20210920
  Receipt Date: 20210920
  Transmission Date: 20211014
  Serious: Yes (Hospitalization, Other)
  Sender: FDA-Public Use
  Company Number: JP-MICRO LABS LIMITED-ML2021-02275

PATIENT
  Age: 21 Year
  Sex: Female
  Weight: 52 kg

DRUGS (1)
  1. DIPHENHYDRAMINE HYDROCHLORIDE (ANDA 205723) [Suspect]
     Active Substance: DIPHENHYDRAMINE HYDROCHLORIDE
     Indication: SUICIDE ATTEMPT
     Route: 048

REACTIONS (4)
  - Communication disorder [Recovered/Resolved]
  - Restlessness [Recovered/Resolved]
  - Intentional overdose [Unknown]
  - Suicide attempt [Unknown]
